FAERS Safety Report 7906583-9 (Version None)
Quarter: 2011Q4

REPORT INFORMATION
  Report Type: 
  Country: None (occurrence: None)
  Receive Date: 20111110
  Receipt Date: 20111102
  Transmission Date: 20120403
  Serious: Yes (Hospitalization)
  Sender: FDA-Public Use
  Company Number: US-UCBSA-042279

PATIENT
  Age: 14 Year
  Sex: Female
  Weight: 46 kg

DRUGS (9)
  1. LACOSAMIDE [Suspect]
     Indication: CONVULSION
     Route: 048
     Dates: start: 20110727, end: 20111019
  2. CARAFATE [Concomitant]
     Indication: ABDOMINAL PAIN
     Route: 048
     Dates: start: 20110901
  3. NEURONTIN [Concomitant]
     Indication: NEURALGIA
     Route: 048
     Dates: start: 20110909
  4. ELAVIL [Concomitant]
     Indication: FATIGUE
     Route: 048
     Dates: start: 20110824, end: 20110101
  5. TRILEPTAL [Concomitant]
     Indication: EPILEPSY
     Route: 048
     Dates: start: 20110201
  6. ELAVIL [Concomitant]
     Dosage: 20MG DAILY
  7. ELAVIL [Concomitant]
     Indication: HEADACHE
     Route: 048
     Dates: start: 20110824, end: 20110101
  8. ELAVIL [Concomitant]
     Dosage: 20MG DAILY
  9. KEPPRA [Concomitant]
     Indication: EPILEPSY
     Route: 048
     Dates: start: 20110620

REACTIONS (3)
  - EPILEPSY [None]
  - MIGRAINE [None]
  - VOMITING [None]
